FAERS Safety Report 5649437-3 (Version None)
Quarter: 2008Q1

REPORT INFORMATION
  Report Type: 
  Country: None (occurrence: None)
  Receive Date: 20080131
  Receipt Date: 20071220
  Transmission Date: 20080703
  Serious: Yes (Hospitalization)
  Sender: FDA-Public Use
  Company Number: US200712004472

PATIENT
  Age: 45 Year
  Sex: Female

DRUGS (2)
  1. BYETTA [Suspect]
     Indication: DIABETES MELLITUS
     Dosage: 5 UG, EACH EVENING, SUBCUTANEOUS
     Route: 058
     Dates: start: 20071201, end: 20071201
  2. METFORMIN HCL [Concomitant]

REACTIONS (1)
  - HYPERSENSITIVITY [None]
